FAERS Safety Report 11323744 (Version 5)
Quarter: 2015Q4

REPORT INFORMATION
  Report Type: Spontaneous
  Country: US (occurrence: US)
  Receive Date: 20150730
  Receipt Date: 20151209
  Transmission Date: 20160304
  Serious: Yes (Other)
  Sender: FDA-Public Use
  Company Number: US-ASTRAZENECA-2015SE71241

PATIENT
  Sex: Female

DRUGS (1)
  1. OLAPARIB [Suspect]
     Active Substance: OLAPARIB
     Indication: OVARIAN CANCER
     Route: 048

REACTIONS (8)
  - Anaemia [Recovered/Resolved]
  - Diarrhoea [Not Recovered/Not Resolved]
  - Headache [Unknown]
  - Arthralgia [Not Recovered/Not Resolved]
  - Viral infection [Not Recovered/Not Resolved]
  - Myalgia [Not Recovered/Not Resolved]
  - Rash [Unknown]
  - Fatigue [Not Recovered/Not Resolved]
